FAERS Safety Report 18454725 (Version 1)
Quarter: 2020Q4

REPORT INFORMATION
  Report Type: Spontaneous
  Country: DZ (occurrence: DZ)
  Receive Date: 20201102
  Receipt Date: 20201102
  Transmission Date: 20210114
  Serious: Yes (Death)
  Sender: FDA-Public Use
  Company Number: DZ-PERRIGO-20DZ015193

PATIENT
  Age: 28 Year
  Sex: Male

DRUGS (1)
  1. ACETAMINOPHEN. [Suspect]
     Active Substance: ACETAMINOPHEN
     Indication: INTENTIONAL OVERDOSE
     Dosage: UNK
     Route: 048

REACTIONS (4)
  - Hepatic encephalopathy [Fatal]
  - Acute hepatic failure [Fatal]
  - Agitation [Fatal]
  - Intentional overdose [Fatal]
